FAERS Safety Report 19820812 (Version 1)
Quarter: 2021Q3

REPORT INFORMATION
  Report Type: Spontaneous
  Country: US (occurrence: US)
  Receive Date: 20210909
  Receipt Date: 20210909
  Transmission Date: 20211014
  Serious: No
  Sender: FDA-Public Use
  Company Number: None

PATIENT
  Age: 19 Year
  Sex: Male
  Weight: 102.7 kg

DRUGS (6)
  1. DAUNORUBICIN [Suspect]
     Active Substance: DAUNORUBICIN
     Dates: end: 20210826
  2. DEXAMTHASONE [Concomitant]
     Active Substance: DEXAMETHASONE
     Dates: end: 20210825
  3. ONCASPAR [Suspect]
     Active Substance: PEGASPARGASE
     Dates: end: 20210808
  4. VINCRISTINE [Concomitant]
     Active Substance: VINCRISTINE
     Dates: end: 20210826
  5. METHOTREXATE. [Concomitant]
     Active Substance: METHOTREXATE
     Dates: end: 20210812
  6. CYTARABINE. [Concomitant]
     Active Substance: CYTARABINE
     Dates: end: 20210805

REACTIONS (8)
  - Neutrophil count decreased [None]
  - Sinus tachycardia [None]
  - Escherichia infection [None]
  - Cholecystitis [None]
  - Bacterial infection [None]
  - Tachycardia [None]
  - Febrile neutropenia [None]
  - Blood culture positive [None]

NARRATIVE: CASE EVENT DATE: 20210828
